FAERS Safety Report 18589885 (Version 1)
Quarter: 2020Q4

REPORT INFORMATION
  Report Type: Spontaneous
  Country: US (occurrence: US)
  Receive Date: 20201205
  Receipt Date: 20201205
  Transmission Date: 20210114
  Serious: Yes (Hospitalization)
  Sender: FDA-Public Use
  Company Number: None

PATIENT
  Age: 40 Year
  Sex: Female
  Weight: 162 kg

DRUGS (9)
  1. LEXAPRO [Concomitant]
     Active Substance: ESCITALOPRAM OXALATE
  2. DEXAMETHASONE. [Suspect]
     Active Substance: DEXAMETHASONE
     Dates: end: 20201112
  3. TYLENOL [Concomitant]
     Active Substance: ACETAMINOPHEN
  4. OLANZAPINE. [Suspect]
     Active Substance: OLANZAPINE
     Dates: end: 20201112
  5. ZYRTEC [Concomitant]
     Active Substance: CETIRIZINE HYDROCHLORIDE
  6. FOSAPREPITANT DIMEGLUMINE. [Suspect]
     Active Substance: FOSAPREPITANT DIMEGLUMINE
     Dates: end: 20201112
  7. ALOXI [Suspect]
     Active Substance: PALONOSETRON HYDROCHLORIDE
     Dates: end: 20201112
  8. ADVIR  INHALOR [Concomitant]
  9. MULTIVITAMIN [Concomitant]
     Active Substance: VITAMINS

REACTIONS (10)
  - Soft tissue necrosis [None]
  - Corynebacterium test positive [None]
  - Erythema [None]
  - Secretion discharge [None]
  - Dermal cyst [None]
  - Soft tissue inflammation [None]
  - Cyst rupture [None]
  - Folliculitis [None]
  - Bacterial infection [None]
  - Localised oedema [None]

NARRATIVE: CASE EVENT DATE: 20201124
